FAERS Safety Report 9288318 (Version 1)
Quarter: 2013Q2

REPORT INFORMATION
  Report Type: Spontaneous
  Country: US (occurrence: US)
  Receive Date: 20130514
  Receipt Date: 20130514
  Transmission Date: 20140414
  Serious: Yes (Hospitalization)
  Sender: FDA-Public Use
  Company Number: US-OTSUKA-US-2013-10887

PATIENT
  Sex: 0

DRUGS (6)
  1. SAMSCA [Suspect]
     Indication: HYPONATRAEMIA
     Dosage: 15 MG MILLIGRAM(S), QD
     Route: 048
     Dates: start: 20130403, end: 20130430
  2. LACTULOSE [Concomitant]
     Indication: HEPATIC ENCEPHALOPATHY
  3. XIFAXAN [Concomitant]
     Indication: HEPATIC ENCEPHALOPATHY
  4. METRONIDAZOLE [Concomitant]
     Indication: PERITONITIS
  5. CEPHALEXIN [Concomitant]
     Indication: PERITONITIS
  6. CIPRO [Concomitant]
     Indication: PERITONITIS

REACTIONS (4)
  - Hyponatraemia [Unknown]
  - Drug ineffective [Unknown]
  - Renal failure [Unknown]
  - Hepatic failure [Unknown]
